FAERS Safety Report 11512515 (Version 1)
Quarter: 2015Q3

REPORT INFORMATION
  Report Type: Spontaneous
  Country: US (occurrence: US)
  Receive Date: 20150916
  Receipt Date: 20150916
  Transmission Date: 20151125
  Serious: Yes (Other)
  Sender: FDA-Public Use
  Company Number: US-BAYER-2015-418366

PATIENT
  Age: 27 Year
  Sex: Female

DRUGS (1)
  1. MIRENA [Suspect]
     Active Substance: LEVONORGESTREL
     Indication: CONTRACEPTION
     Dosage: 20 MCG/24HR, CONT
     Route: 015
     Dates: start: 201305, end: 20150818

REACTIONS (5)
  - Post procedural haemorrhage [Recovered/Resolved]
  - Genital haemorrhage [None]
  - Procedural pain [None]
  - Abdominal pain lower [None]
  - Fatigue [None]

NARRATIVE: CASE EVENT DATE: 20150818
